FAERS Safety Report 4645177-8 (Version None)
Quarter: 2005Q2

REPORT INFORMATION
  Report Type: 
  Country: None (occurrence: None)
  Receive Date: 20050331
  Receipt Date: 20041203
  Transmission Date: 20051028
  Serious: No
  Sender: FDA-Public Use
  Company Number: 04P-163-0282269-00

PATIENT
  Age: 67 Year
  Sex: Female
  Weight: 501.6 kg

DRUGS (7)
  1. HUMIRA [Suspect]
     Indication: RHEUMATOID ARTHRITIS
     Dosage: 40 MG, 1 IN 2 WK, SUBCUTANEOUS
     Route: 058
     Dates: start: 20041111
  2. METHOTREXATE SODIUM [Concomitant]
  3. METFORMIN HCL [Concomitant]
  4. PREDNISONE TAB [Concomitant]
  5. CALCIUM WITH VITAMIN D [Concomitant]
  6. IRON [Concomitant]
  7. ESOMEPRAZOLE [Concomitant]

REACTIONS (2)
  - INJECTION SITE HAEMORRHAGE [None]
  - INJECTION SITE PAIN [None]
